FAERS Safety Report 14132061 (Version 1)
Quarter: 2017Q4

REPORT INFORMATION
  Report Type: Spontaneous
  Country: FR (occurrence: FR)
  Receive Date: 20171026
  Receipt Date: 20171026
  Transmission Date: 20180321
  Serious: Yes (Other)
  Sender: FDA-Public Use
  Company Number: FR-SA-2017SA204718

PATIENT
  Age: 93 Year
  Sex: Female

DRUGS (12)
  1. OMEPRAZOLE. [Interacting]
     Active Substance: OMEPRAZOLE
     Indication: GASTROOESOPHAGEAL REFLUX DISEASE
     Route: 048
  2. APROVEL [Suspect]
     Active Substance: IRBESARTAN
     Indication: HYPERTENSION
     Route: 048
  3. SERESTA [Interacting]
     Active Substance: OXAZEPAM
     Indication: ANXIETY
     Route: 048
  4. APROVEL [Interacting]
     Active Substance: IRBESARTAN
     Indication: HYPERTENSION
     Route: 048
     Dates: start: 20171010
  5. AERIUS [Interacting]
     Active Substance: DESLORATADINE
     Indication: HYPERSENSITIVITY
     Route: 048
     Dates: start: 20160908
  6. RISPERDAL [Interacting]
     Active Substance: RISPERIDONE
     Indication: ANXIETY
     Route: 048
  7. FUROSEMIDE. [Interacting]
     Active Substance: FUROSEMIDE
     Indication: OEDEMA
     Route: 048
  8. VESICARE [Interacting]
     Active Substance: SOLIFENACIN SUCCINATE
     Indication: URINARY INCONTINENCE
     Route: 048
     Dates: start: 20160908
  9. FUROSEMIDE. [Interacting]
     Active Substance: FUROSEMIDE
     Indication: OEDEMA
     Route: 048
     Dates: start: 20171010
  10. BISOPROLOL FUMARATE. [Interacting]
     Active Substance: BISOPROLOL FUMARATE
     Indication: HYPERTENSION
     Route: 048
  11. MIANSERIN HYDROCHLORIDE [Interacting]
     Active Substance: MIANSERIN HYDROCHLORIDE
     Indication: AFFECTIVE DISORDER
     Route: 048
  12. SINGULAIR [Interacting]
     Active Substance: MONTELUKAST SODIUM
     Indication: ASTHMA
     Route: 048

REACTIONS (3)
  - Drug interaction [Unknown]
  - Hypotension [Recovered/Resolved]
  - Fall [Recovered/Resolved]

NARRATIVE: CASE EVENT DATE: 20171010
